FAERS Safety Report 13937926 (Version 2)
Quarter: 2018Q1

REPORT INFORMATION
  Report Type: Spontaneous
  Country: US (occurrence: US)
  Receive Date: 20170905
  Receipt Date: 20180330
  Transmission Date: 20180508
  Serious: No
  Sender: FDA-Public Use
  Company Number: US-009507513-1708USA009182

PATIENT
  Sex: Male

DRUGS (3)
  1. MILK THISTLE [Concomitant]
     Active Substance: DIETARY SUPPLEMENT\HERBALS\MILK THISTLE
     Dosage: UNK
  2. ZEPATIER [Suspect]
     Active Substance: ELBASVIR\GRAZOPREVIR
     Indication: HEPATITIS C
     Dosage: 50-100MG (ONE TABLET BY MOUTH EVERY DAY)
     Route: 048
     Dates: start: 201708
  3. BIOTIN [Concomitant]
     Active Substance: BIOTIN
     Dosage: UNK

REACTIONS (9)
  - Dizziness [Recovered/Resolved]
  - Diarrhoea [Unknown]
  - Drug dose omission [Unknown]
  - Migraine [Unknown]
  - Fatigue [Unknown]
  - Ear congestion [Recovered/Resolved]
  - Rash [Unknown]
  - Visual impairment [Recovered/Resolved]
  - Dyspnoea [Unknown]

NARRATIVE: CASE EVENT DATE: 2017
